FAERS Safety Report 9486452 (Version 2)
Quarter: 2013Q4

REPORT INFORMATION
  Report Type: Report from Study
  Country: CA (occurrence: CA)
  Receive Date: 20130829
  Receipt Date: 20131015
  Transmission Date: 20140711
  Serious: Yes (Hospitalization)
  Sender: FDA-Public Use
  Company Number: CA-US-EMD SERONO, INC.-7232967

PATIENT
  Age: 49 Year
  Sex: Female

DRUGS (1)
  1. REBIF [Suspect]
     Indication: RELAPSING-REMITTING MULTIPLE SCLEROSIS
     Route: 058
     Dates: start: 20000801

REACTIONS (6)
  - Multiple sclerosis relapse [Recovering/Resolving]
  - Kidney infection [Recovering/Resolving]
  - Loss of consciousness [Recovering/Resolving]
  - Urinary tract infection [Recovering/Resolving]
  - Headache [Unknown]
  - Inappropriate schedule of drug administration [Unknown]
